FAERS Safety Report 6831142-9 (Version None)
Quarter: 2010Q3

REPORT INFORMATION
  Report Type: 
  Country: None (occurrence: None)
  Receive Date: 20100712
  Receipt Date: 20100707
  Transmission Date: 20110219
  Serious: Yes (Death)
  Sender: FDA-Public Use
  Company Number: US-SANOFI-AVENTIS-2010SA039651

PATIENT
  Age: 66 Year

DRUGS (2)
  1. PLAVIX [Suspect]
     Indication: ACUTE CORONARY SYNDROME
     Route: 048
     Dates: start: 20100506, end: 20100506
  2. PLAVIX [Suspect]
     Route: 048
     Dates: start: 20100507

REACTIONS (2)
  - CARDIOGENIC SHOCK [None]
  - MYOCARDIAL INFARCTION [None]
